FAERS Safety Report 9011309 (Version 1)
Quarter: 2013Q1

REPORT INFORMATION
  Report Type: Other
  Country: AT (occurrence: AT)
  Receive Date: 20130109
  Receipt Date: 20130109
  Transmission Date: 20140127
  Serious: Yes (Other)
  Sender: FDA-Public Use
  Company Number: AT-WATSON-2012-23416

PATIENT
  Age: 56 Year
  Sex: Male

DRUGS (1)
  1. SIMVASTATIN (UNKNOWN) [Suspect]
     Indication: BLOOD TRIGLYCERIDES INCREASED
     Dosage: 40 MG, DAILY
     Route: 065
     Dates: start: 2007, end: 201206

REACTIONS (1)
  - Psoriasis [Not Recovered/Not Resolved]
